FAERS Safety Report 5510587-3 (Version None)
Quarter: 2007Q4

REPORT INFORMATION
  Report Type: 
  Country: None (occurrence: None)
  Receive Date: 20071107
  Receipt Date: 20071026
  Transmission Date: 20080405
  Serious: Yes (Other)
  Sender: FDA-Public Use
  Company Number: 238427K07USA

PATIENT
  Age: 52 Year
  Sex: Female
  Weight: 58.9676 kg

DRUGS (2)
  1. REBIF [Suspect]
     Indication: MULTIPLE SCLEROSIS
     Dosage: 44 MCG, 3 IN 1 WEEKS, SUBCUTANEOUS
     Route: 058
     Dates: start: 20070423
  2. LEXAPRO [Concomitant]

REACTIONS (6)
  - FAT TISSUE INCREASED [None]
  - GASTRITIS [None]
  - HOT FLUSH [None]
  - MASS [None]
  - PARAESTHESIA [None]
  - UTERINE LEIOMYOMA [None]
